FAERS Safety Report 7712598-6 (Version None)
Quarter: 2011Q3

REPORT INFORMATION
  Report Type: 
  Country: None (occurrence: None)
  Receive Date: 20110823
  Receipt Date: 20110815
  Transmission Date: 20111222
  Serious: Yes (Hospitalization)
  Sender: FDA-Public Use
  Company Number: 2011001926

PATIENT
  Age: 74 Year
  Sex: Female

DRUGS (3)
  1. TARCEVA [Suspect]
  2. TARCEVA [Suspect]
     Indication: LUNG CARCINOMA CELL TYPE UNSPECIFIED STAGE 0
     Dosage: 150, 100 MG, UID/QD, ORAL
     Route: 048
     Dates: start: 20110407
  3. TARCEVA [Suspect]
     Indication: LUNG CARCINOMA CELL TYPE UNSPECIFIED STAGE 0
     Dosage: 150, 100 MG, UID/QD, ORAL
     Route: 048
     Dates: end: 20110701

REACTIONS (8)
  - SKIN LESION [None]
  - CONTUSION [None]
  - CONSTIPATION [None]
  - DYSPEPSIA [None]
  - COUGH [None]
  - DIARRHOEA [None]
  - RASH [None]
  - CLOSTRIDIAL INFECTION [None]
